FAERS Safety Report 19216821 (Version 1)
Quarter: 2021Q2

REPORT INFORMATION
  Report Type: Spontaneous
  Country: US (occurrence: US)
  Receive Date: 20210504
  Receipt Date: 20210504
  Transmission Date: 20210717
  Serious: Yes (Hospitalization)
  Sender: FDA-Public Use
  Company Number: None

PATIENT
  Sex: Female

DRUGS (4)
  1. REBIF [Suspect]
     Active Substance: INTERFERON BETA-1A
     Indication: MULTIPLE SCLEROSIS
     Route: 058
     Dates: start: 20180116
  2. MULTIPLE VIT [Concomitant]
  3. CRANBERRY. [Concomitant]
     Active Substance: CRANBERRY
  4. AMLODIPINE [Concomitant]
     Active Substance: AMLODIPINE BESYLATE

REACTIONS (5)
  - Urinary tract infection [None]
  - Ulcer haemorrhage [None]
  - Nephrolithiasis [None]
  - Surgery [None]
  - Therapy interrupted [None]
